FAERS Safety Report 5481520-8 (Version None)
Quarter: 2007Q4

REPORT INFORMATION
  Report Type: 
  Country: None (occurrence: None)
  Receive Date: 20071010
  Receipt Date: 20071001
  Transmission Date: 20080405
  Serious: Yes (Other)
  Sender: FDA-Public Use
  Company Number: FR-ROCHE-522818

PATIENT
  Sex: Female

DRUGS (1)
  1. BONIVA [Suspect]
     Indication: OSTEOPOROSIS
     Dosage: DOSAGE REPORETD: 150MG/MONTH
     Route: 048

REACTIONS (3)
  - HAEMOPTYSIS [None]
  - OESOPHAGEAL ULCER [None]
  - OESOPHAGITIS [None]
